FAERS Safety Report 14333664 (Version 5)
Quarter: 2018Q2

REPORT INFORMATION
  Report Type: Spontaneous
  Country: ES (occurrence: ES)
  Receive Date: 20171228
  Receipt Date: 20180626
  Transmission Date: 20180711
  Serious: Yes (Congenital Anomaly, Other)
  Sender: FDA-Public Use
  Company Number: ES-PFIZER INC-2017552018

PATIENT
  Sex: Male
  Weight: 2 kg

DRUGS (9)
  1. METILPREDNISOLONA [Suspect]
     Active Substance: METHYLPREDNISOLONE
     Indication: BURKITT^S LYMPHOMA
     Dosage: 125 MG, CYCLIC
     Route: 064
     Dates: start: 20170814, end: 20170926
  2. PREDNISONA [Suspect]
     Active Substance: PREDNISONE
     Indication: BURKITT^S LYMPHOMA
     Dosage: 200 MG, SINGLE
     Route: 064
     Dates: start: 20170814, end: 20170926
  3. RITUXIMAB. [Suspect]
     Active Substance: RITUXIMAB
     Indication: BURKITT^S LYMPHOMA
     Dosage: 724 MG, CYCLIC
     Route: 064
     Dates: start: 20170814, end: 20170926
  4. CICLOFOSFAMIDA [Suspect]
     Active Substance: CYCLOPHOSPHAMIDE
     Indication: BURKITT^S LYMPHOMA
     Dosage: 1448 MG, CYCLIC
     Route: 064
     Dates: start: 20170814, end: 20170926
  5. METHOTREXATE SODIUM. [Suspect]
     Active Substance: METHOTREXATE SODIUM
     Indication: BURKITT^S LYMPHOMA
     Dosage: 12 MG, CYCLIC
     Route: 064
     Dates: start: 20170814, end: 20170926
  6. DOXORUBICIN HCL [Suspect]
     Active Substance: DOXORUBICIN HYDROCHLORIDE
     Indication: BURKITT^S LYMPHOMA
     Dosage: 96.5 MG, CYCLIC
     Route: 064
     Dates: start: 20170814, end: 20170926
  7. VINCRISTINA PFIZER [Suspect]
     Active Substance: VINCRISTINE
     Indication: BURKITT^S LYMPHOMA
     Dosage: 2 MG, CYCLIC
     Route: 064
     Dates: start: 20170814, end: 20170926
  8. CITARABINA [Suspect]
     Active Substance: CYTARABINE
     Indication: BURKITT^S LYMPHOMA
     Dosage: 30 MG, CYCLIC
     Route: 064
     Dates: start: 20170814, end: 20170926
  9. HIDROCORTISONA [Suspect]
     Active Substance: HYDROCORTISONE
     Indication: BURKITT^S LYMPHOMA
     Dosage: 20 MG, CYCLIC
     Route: 064
     Dates: start: 20170814, end: 20170926

REACTIONS (2)
  - Maternal exposure during pregnancy [Recovering/Resolving]
  - Congenital cardiovascular anomaly [Recovering/Resolving]

NARRATIVE: CASE EVENT DATE: 20170814
